FAERS Safety Report 6154497-X (Version None)
Quarter: 2009Q2

REPORT INFORMATION
  Report Type: 
  Country: None (occurrence: None)
  Receive Date: 20090410
  Receipt Date: 20090410
  Transmission Date: 20091009
  Serious: Yes (Other)
  Sender: FDA-Public Use
  Company Number: None

PATIENT
  Age: 68 Year
  Sex: Female
  Weight: 96.6162 kg

DRUGS (2)
  1. DIGOXIN [Suspect]
     Indication: ATRIAL FIBRILLATION
     Dosage: .125 AND .250 1 NIGHTLY ORAL
     Route: 048
     Dates: start: 20090302, end: 20090404
  2. . [Concomitant]

REACTIONS (6)
  - ATRIAL FIBRILLATION [None]
  - HEART RATE ABNORMAL [None]
  - HEART RATE IRREGULAR [None]
  - PRESYNCOPE [None]
  - PRODUCT QUALITY ISSUE [None]
  - PULSE ABNORMAL [None]
